FAERS Safety Report 4357550-6 (Version None)
Quarter: 2004Q2

REPORT INFORMATION
  Report Type: 
  Country: None (occurrence: None)
  Receive Date: 20040510
  Receipt Date: 20040427
  Transmission Date: 20050107
  Serious: Yes (Life-Threatening, Hospitalization)
  Sender: FDA-Public Use
  Company Number: GB-JNJFOC-20040405768

PATIENT
  Age: 54 Year
  Sex: Male

DRUGS (6)
  1. REMICADE [Suspect]
     Indication: RHEUMATOID ARTHRITIS
     Dosage: 270 MG INTRAVENOUS
     Route: 042
     Dates: start: 20030627, end: 20030826
  2. METHOTREXATE [Concomitant]
  3. SULFASALAZINE [Concomitant]
  4. HYDROXYCHLOROQUINE SULFATE [Concomitant]
  5. CO-PROXAMOL (APOREX) [Concomitant]
  6. LOSEC (OMEPRAZOLE) [Concomitant]

REACTIONS (1)
  - PNEUMONITIS [None]
